FAERS Safety Report 25920974 (Version 4)
Quarter: 2025Q4

REPORT INFORMATION
  Report Type: Spontaneous
  Country: US (occurrence: US)
  Receive Date: 20251014
  Receipt Date: 20251222
  Transmission Date: 20260118
  Serious: No
  Sender: BAYER HEALTHCARE LLC
  Company Number: US-BAYER-2025A135173

PATIENT
  Age: 54 Year
  Sex: Male

DRUGS (9)
  1. MIRALAX [Suspect]
     Active Substance: POLYETHYLENE GLYCOL 3350
     Indication: Gastrointestinal disorder
     Dosage: 4 DF, QD, MIXED IN WATER
     Route: 048
  2. BISACODYL [Concomitant]
     Active Substance: BISACODYL
  3. RICHMOND [Concomitant]
  4. SENNA PLUS [Concomitant]
     Active Substance: DOCUSATE SODIUM\SENNOSIDES\SENNOSIDES A AND B
  5. MAGNESIUM CITRATE [Concomitant]
     Active Substance: MAGNESIUM CITRATE
  6. MILK OF MAGNESIA [Concomitant]
     Active Substance: MAGNESIUM HYDROXIDE
  7. LACTOSE [Concomitant]
     Active Substance: LACTOSE
  8. TRULANCE [Concomitant]
     Active Substance: PLECANATIDE
  9. LINZESS [Concomitant]
     Active Substance: LINACLOTIDE

REACTIONS (7)
  - Nausea [Not Recovered/Not Resolved]
  - Drug ineffective [Not Recovered/Not Resolved]
  - Increased dose administered [None]
  - Incorrect product administration duration [None]
  - Gastrointestinal disorder [Not Recovered/Not Resolved]
  - Weight increased [None]
  - Product taste abnormal [None]
